FAERS Safety Report 8478865-6 (Version None)
Quarter: 2012Q2

REPORT INFORMATION
  Report Type: 
  Country: None (occurrence: None)
  Receive Date: 20120629
  Receipt Date: 20120626
  Transmission Date: 20120825
  Serious: Yes (Other)
  Sender: FDA-Public Use
  Company Number: US-PFIZER INC-2012138699

PATIENT
  Sex: Female
  Weight: 83.9 kg

DRUGS (12)
  1. ARICEPT [Concomitant]
     Dosage: UNK
  2. GABAPENTIN [Concomitant]
     Dosage: UNK
  3. ARICEPT [Concomitant]
     Dosage: 10 MG, 1X/DAY
  4. CELEBREX [Suspect]
     Indication: BONE PAIN
     Dosage: 200 MG, 1X/DAY
     Route: 048
  5. MORPHINE [Concomitant]
     Dosage: 30 MG, 3X/DAY
  6. ASPIRIN [Concomitant]
     Dosage: 81 MG, UNK
  7. ASPIRIN [Concomitant]
     Dosage: UNK
  8. GABAPENTIN [Concomitant]
     Dosage: 400 MG, 3X/DAY
  9. CYMBALTA [Concomitant]
     Dosage: 60 MG, 1X/DAY
  10. CYMBALTA [Concomitant]
     Dosage: UNK
  11. CELEBREX [Suspect]
     Indication: ARTHRITIS
  12. MORPHINE [Concomitant]
     Dosage: UNK

REACTIONS (8)
  - SURGERY [None]
  - SCOLIOSIS [None]
  - DEMENTIA [None]
  - SPINAL DISORDER [None]
  - BONE DISORDER [None]
  - THERMAL BURN [None]
  - BODY HEIGHT DECREASED [None]
  - PAIN [None]
